FAERS Safety Report 15632191 (Version 1)
Quarter: 2018Q4

REPORT INFORMATION
  Report Type: Spontaneous
  Country: US (occurrence: US)
  Receive Date: 20181119
  Receipt Date: 20181119
  Transmission Date: 20190205
  Serious: Yes (Hospitalization, Disabling)
  Sender: FDA-Public Use
  Company Number: US-JNJFOC-20181121939

PATIENT
  Age: 56 Year
  Sex: Male
  Weight: 110.68 kg

DRUGS (1)
  1. INVOKANA [Suspect]
     Active Substance: CANAGLIFLOZIN
     Indication: PRODUCT USED FOR UNKNOWN INDICATION
     Route: 048

REACTIONS (6)
  - Diabetic foot [Not Recovered/Not Resolved]
  - Staphylococcal infection [Recovering/Resolving]
  - Post procedural haemorrhage [Recovered/Resolved]
  - Leg amputation [Recovering/Resolving]
  - Gas gangrene [Recovering/Resolving]
  - Amputation [Recovering/Resolving]

NARRATIVE: CASE EVENT DATE: 2015
